FAERS Safety Report 17733759 (Version 1)
Quarter: 2020Q2

REPORT INFORMATION
  Report Type: Spontaneous
  Country: US (occurrence: US)
  Receive Date: 20200430
  Receipt Date: 20200430
  Transmission Date: 20200714
  Serious: No
  Sender: FDA-Public Use
  Company Number: None

PATIENT
  Sex: Female

DRUGS (1)
  1. HUMIRA [Suspect]
     Active Substance: ADALIMUMAB
     Route: 058
     Dates: start: 20191108

REACTIONS (5)
  - Injection site rash [None]
  - Injection site erythema [None]
  - Injection site reaction [None]
  - Injection site warmth [None]
  - Injection site swelling [None]
